FAERS Safety Report 26073222 (Version 1)
Quarter: 2025Q4

REPORT INFORMATION
  Report Type: Spontaneous
  Country: US (occurrence: US)
  Receive Date: 20251121
  Receipt Date: 20251121
  Transmission Date: 20260118
  Serious: Yes (Life-Threatening, Disabling)
  Sender: JOHNSON AND JOHNSON
  Company Number: US-JNJFOC-20251163067

PATIENT

DRUGS (1)
  1. RYBREVANT [Suspect]
     Active Substance: AMIVANTAMAB-VMJW
     Indication: Non-small cell lung cancer
     Route: 065

REACTIONS (1)
  - Plasma cell myeloma [Unknown]
